FAERS Safety Report 10174894 (Version 2)
Quarter: 2014Q3

REPORT INFORMATION
  Report Type: Spontaneous
  Country: FR (occurrence: FR)
  Receive Date: 20140515
  Receipt Date: 20140810
  Transmission Date: 20150326
  Serious: Yes (Hospitalization)
  Sender: FDA-Public Use
  Company Number: FR-BRISTOL-MYERS SQUIBB COMPANY-20732251

PATIENT
  Age: 63 Year
  Sex: Female

DRUGS (9)
  1. COAPROVEL [Suspect]
     Active Substance: HYDROCHLOROTHIAZIDE\IRBESARTAN
     Indication: HYPERTENSION
     Dosage: 1 DF=IRBESARTAN 300 MG+ HYDROCHLOROTHIAZIDE 25 MG
     Route: 048
     Dates: end: 2014
  2. BI-PROFENID [Suspect]
     Active Substance: KETOPROFEN
     Indication: METASTATIC PAIN
     Route: 048
     Dates: start: 20140408, end: 2014
  3. DAFALGAN CODEINE [Concomitant]
     Active Substance: ACETAMINOPHEN\CODEINE PHOSPHATE
  4. EZETROL [Concomitant]
     Active Substance: EZETIMIBE
  5. OMNIPAQUE [Suspect]
     Active Substance: IOHEXOL
     Dates: start: 20140408, end: 2014
  6. LASILIX [Suspect]
     Active Substance: FUROSEMIDE
     Indication: HYPERTENSION
     Route: 048
     Dates: end: 2014
  7. YERVOY [Suspect]
     Active Substance: IPILIMUMAB
     Indication: MALIGNANT MELANOMA
     Dates: start: 20140417
  8. CORTANCYL [Concomitant]
     Active Substance: PREDNISONE
  9. GLUCOPHAGE [Suspect]
     Active Substance: METFORMIN HYDROCHLORIDE
     Indication: DIABETES MELLITUS
     Route: 048
     Dates: end: 2014

REACTIONS (1)
  - Renal failure acute [Recovered/Resolved]

NARRATIVE: CASE EVENT DATE: 20140419
